FAERS Safety Report 6985229-0 (Version None)
Quarter: 2010Q3

REPORT INFORMATION
  Report Type: 
  Country: None (occurrence: None)
  Receive Date: 20100915
  Receipt Date: 20100904
  Transmission Date: 20110219
  Serious: Yes (Hospitalization)
  Sender: FDA-Public Use
  Company Number: DE-ROCHE-726835

PATIENT
  Age: 42 Year
  Sex: Male

DRUGS (2)
  1. XELODA [Suspect]
     Dosage: FIRST CYCLE OF THERAPY ACCORDING TO XELOX REGIMEN
     Route: 065
     Dates: start: 20100816, end: 20100829
  2. OXALIPLATIN [Suspect]
     Dosage: FIRST CYCLE OF THERAPY ACCORDING TO XELOX REGIMEN
     Route: 065
     Dates: start: 20100816, end: 20100816

REACTIONS (1)
  - CEREBRAL HAEMORRHAGE [None]
